FAERS Safety Report 10181138 (Version 1)
Quarter: 2014Q2

REPORT INFORMATION
  Report Type: Spontaneous
  Country: US (occurrence: US)
  Receive Date: 20140519
  Receipt Date: 20140519
  Transmission Date: 20141212
  Serious: No
  Sender: FDA-Public Use
  Company Number: US-AMGEN INC.-USASP2014026145

PATIENT
  Age: 80 Year
  Sex: Female

DRUGS (8)
  1. PROLIA [Suspect]
     Indication: OSTEOPOROSIS POSTMENOPAUSAL
     Dosage: UNK
     Route: 065
     Dates: start: 201306
  2. PROPRANOLOL [Concomitant]
  3. CALCIUM [Concomitant]
     Indication: SUPPLEMENTATION THERAPY
  4. VITAMIN D                          /00107901/ [Concomitant]
  5. VITAMIN C                          /00008001/ [Concomitant]
  6. VITAMIN E                          /00110501/ [Concomitant]
  7. B COMPLEX                          /00212701/ [Concomitant]
  8. COQ 10 [Concomitant]

REACTIONS (2)
  - Cardiac murmur [Unknown]
  - Back pain [Unknown]
